FAERS Safety Report 15081904 (Version 10)
Quarter: 2023Q1

REPORT INFORMATION
  Report Type: Spontaneous
  Country: US (occurrence: US)
  Receive Date: 20180628
  Receipt Date: 20230117
  Transmission Date: 20230418
  Serious: No
  Sender: FDA-Public Use
  Company Number: US-PFIZER INC-2018261685

PATIENT
  Age: 57 Year
  Sex: Female

DRUGS (3)
  1. NICOTROL [Suspect]
     Active Substance: NICOTINE
     Indication: Smoking cessation therapy
     Dosage: 4 MG
     Route: 055
  2. NICOTROL [Suspect]
     Active Substance: NICOTINE
     Dosage: UNK
     Route: 055
  3. NICOTROL [Suspect]
     Active Substance: NICOTINE
     Dosage: 1-1 1/2 PKG PER DAY
     Dates: start: 20180618

REACTIONS (4)
  - Product dispensing error [Unknown]
  - Expired product administered [Unknown]
  - Poor quality product administered [Not Recovered/Not Resolved]
  - Product taste abnormal [Not Recovered/Not Resolved]
